FAERS Safety Report 5601756-2 (Version None)
Quarter: 2008Q1

REPORT INFORMATION
  Report Type: 
  Country: None (occurrence: None)
  Receive Date: 20080124
  Receipt Date: 20080114
  Transmission Date: 20080703
  Serious: Yes (Hospitalization)
  Sender: FDA-Public Use
  Company Number: US-GILEAD-2008-0014952

PATIENT
  Sex: Female
  Weight: 56.3 kg

DRUGS (10)
  1. AMBRISENTAN [Suspect]
     Indication: PULMONARY HYPERTENSION
     Route: 048
     Dates: start: 20071210
  2. SILDENAFIL CITRATE [Concomitant]
     Route: 048
     Dates: start: 20070518
  3. OXYGEN [Concomitant]
     Dates: start: 20071129
  4. LASIX [Concomitant]
     Dates: start: 20071001
  5. SPIRONOLACTONE [Concomitant]
     Dates: start: 20071001
  6. MAGNESIUM OXIDE [Concomitant]
     Dates: start: 20060101
  7. ADVAIR DISKUS 100/50 [Concomitant]
     Dates: start: 20060101
  8. XOPENEX [Concomitant]
     Dates: start: 20060101
  9. KLOR-CON [Concomitant]
     Dates: start: 20060101
  10. NEXIUM [Concomitant]
     Dates: start: 20070401

REACTIONS (1)
  - ATRIAL FLUTTER [None]
